APPROVED DRUG PRODUCT: KETOROLAC TROMETHAMINE
Active Ingredient: KETOROLAC TROMETHAMINE
Strength: 0.5%
Dosage Form/Route: SOLUTION/DROPS;OPHTHALMIC
Application: A203410 | Product #001 | TE Code: AT
Applicant: MICRO LABS LTD INDIA
Approved: Apr 5, 2019 | RLD: No | RS: No | Type: RX